FAERS Safety Report 7317858-9 (Version None)
Quarter: 2011Q1

REPORT INFORMATION
  Report Type: 
  Country: None (occurrence: None)
  Receive Date: 20110226
  Receipt Date: 20101216
  Transmission Date: 20110831
  Serious: No
  Sender: FDA-Public Use
  Company Number: US-ALLERGAN-1016402US

PATIENT
  Age: 45 Year
  Sex: Female

DRUGS (5)
  1. VALIUM [Concomitant]
     Indication: PRODUCT USED FOR UNKNOWN INDICATION
     Dosage: UNK
  2. INDERAL [Concomitant]
     Indication: HYPERTENSION
  3. BOTOXA? [Suspect]
     Indication: BLEPHAROSPASM
     Dosage: UNK UNITS, Q 3 MONTHS
     Route: 030
     Dates: start: 20101207, end: 20101207
  4. INDERAL [Concomitant]
     Indication: HEART RATE INCREASED
     Dosage: UNK
     Route: 048
  5. TOPAMAX [Concomitant]
     Indication: MIGRAINE
     Dosage: 50 MG, BID
     Route: 048

REACTIONS (1)
  - EYELID PTOSIS [None]
